FAERS Safety Report 9172570 (Version 1)
Quarter: 2013Q1

REPORT INFORMATION
  Report Type: Report from Study
  Country: NZ (occurrence: NZ)
  Receive Date: 20130319
  Receipt Date: 20130319
  Transmission Date: 20140127
  Serious: Yes (Other)
  Sender: FDA-Public Use
  Company Number: NZ-TEVA-392511ISR

PATIENT
  Age: 45 Year
  Sex: Female

DRUGS (16)
  1. CEP-701 [Suspect]
     Route: 065
     Dates: start: 201210, end: 20121117
  2. ARA-C [Suspect]
     Route: 065
     Dates: start: 20121005, end: 20121117
  3. DAUNORUBICIN [Suspect]
     Route: 065
     Dates: start: 20121005, end: 20121117
  4. PAROXETINE [Concomitant]
     Dosage: 20 MILLIGRAM DAILY;
     Route: 048
     Dates: start: 20121117
  5. QUINAPRIL HYDROCHLORIDE [Concomitant]
     Dosage: 5 MILLIGRAM DAILY;
     Route: 048
     Dates: start: 20121117
  6. METFORMIN HYDROCHLORIDE [Concomitant]
     Dosage: 1000 MILLIGRAM DAILY;
     Route: 048
     Dates: start: 20121117
  7. PARACETAMOL [Concomitant]
     Dosage: 4 GRAM DAILY; 1G PO QID/ PRN
     Route: 048
     Dates: start: 20121117
  8. ONDANSETRON [Concomitant]
     Dosage: 24 MILLIGRAM DAILY; 8MG PO TDS/ PRN
     Route: 048
     Dates: start: 20121117
  9. ACICLOVIR [Concomitant]
     Dosage: 800 MILLIGRAM DAILY;
     Route: 048
     Dates: start: 20121117
  10. FLUCONAZOLE [Concomitant]
     Dosage: 800 MILLIGRAM DAILY;
     Route: 048
     Dates: start: 20121117
  11. NYSTATIN [Concomitant]
     Dosage: 4 ML DAILY;
     Route: 048
     Dates: start: 20121117
  12. PRAVASTATIN SODIUM [Concomitant]
     Dosage: 20 MILLIGRAM DAILY;
     Route: 048
     Dates: start: 20121117
  13. METOCLOPRAMIDE HYDROCLORIDE [Concomitant]
     Dosage: 30 MILLIGRAM DAILY; 10MG PO TDS/ PRN
     Route: 048
     Dates: start: 20121117
  14. DOCUSATE SODIUM + SENNOSIDES A AND B [Concomitant]
     Dosage: 4 DOSAGE FORMS DAILY; 2 TABLETS PO BD/ PRN
     Route: 048
     Dates: start: 20121117
  15. ZOPICLONE [Concomitant]
     Dosage: 7.5 MILLIGRAM DAILY; 7.5MG PO NOCTE/ PRN
     Route: 048
     Dates: start: 20121117
  16. LORATADINE [Concomitant]
     Dosage: 10 MILLIGRAM DAILY; 10MG PO DAILY/ PRN
     Route: 048
     Dates: start: 20121117

REACTIONS (1)
  - Thrombocytopenia [Recovered/Resolved]
